FAERS Safety Report 8339217-2 (Version None)
Quarter: 2012Q2

REPORT INFORMATION
  Report Type: 
  Country: None (occurrence: None)
  Receive Date: 20120507
  Receipt Date: 20120426
  Transmission Date: 20120825
  Serious: Yes (Other)
  Sender: FDA-Public Use
  Company Number: DE-US-EMD SERONO, INC.-7116961

PATIENT
  Sex: Female
  Weight: 65 kg

DRUGS (7)
  1. ACETAMINOPHEN [Concomitant]
     Indication: PAIN
     Dosage: 1-2 X 500
     Dates: start: 20100325
  2. ACETAMINOPHEN [Concomitant]
     Indication: INFLUENZA LIKE ILLNESS
  3. REBIF [Suspect]
     Indication: RELAPSING-REMITTING MULTIPLE SCLEROSIS
     Route: 058
     Dates: start: 20100205
  4. REBIF [Suspect]
     Route: 058
     Dates: start: 20100323
  5. IBUPROFEN TABLETS [Concomitant]
     Indication: INFLUENZA LIKE ILLNESS
  6. REBIF [Suspect]
     Route: 058
     Dates: start: 20100223, end: 20100321
  7. IBUPROFEN TABLETS [Concomitant]
     Indication: PAIN
     Dosage: 400 TO 800
     Dates: start: 20100205, end: 20100325

REACTIONS (5)
  - PAIN IN EXTREMITY [None]
  - WEIGHT DECREASED [None]
  - ASTHENIA [None]
  - MENTAL DISORDER [None]
  - DYSPNOEA [None]
